FAERS Safety Report 23463314 (Version 1)
Quarter: 2024Q1

REPORT INFORMATION
  Report Type: Spontaneous
  Country: ES (occurrence: ES)
  Receive Date: 20240131
  Receipt Date: 20240131
  Transmission Date: 20240410
  Serious: Yes (Other)
  Sender: FDA-Public Use
  Company Number: None

PATIENT
  Age: 52 Year
  Sex: Male
  Weight: 78 kg

DRUGS (7)
  1. NIVOLUMAB [Suspect]
     Active Substance: NIVOLUMAB
     Indication: Renal cancer metastatic
     Dosage: 3 MG/KG
     Route: 042
     Dates: start: 20230913, end: 20230913
  2. IPILIMUMAB [Suspect]
     Active Substance: IPILIMUMAB
     Indication: Renal cancer metastatic
     Route: 042
     Dates: start: 20230913, end: 20230913
  3. METHYLPREDNISOLONE [Concomitant]
     Active Substance: METHYLPREDNISOLONE
     Indication: Product used for unknown indication
     Route: 042
     Dates: start: 20230916
  4. PREDNISONE [Concomitant]
     Active Substance: PREDNISONE
     Indication: Product used for unknown indication
     Dosage: 30 MG 1-1-1/2 /8 H.
     Route: 048
     Dates: start: 20230916, end: 20240125
  5. APRACLONIDINE HYDROCHLORIDE [Concomitant]
     Active Substance: APRACLONIDINE HYDROCHLORIDE
     Indication: Product used for unknown indication
     Dosage: 1 GOTA/ 12 H
     Route: 047
     Dates: start: 20230916
  6. TOBRADEX [Concomitant]
     Active Substance: DEXAMETHASONE\TOBRAMYCIN
     Indication: Product used for unknown indication
     Route: 047
     Dates: start: 20230916, end: 20230916
  7. NEXIUM [Concomitant]
     Active Substance: ESOMEPRAZOLE MAGNESIUM
     Indication: Product used for unknown indication
     Route: 048
     Dates: start: 20230916

REACTIONS (2)
  - Orbital myositis [Not Recovered/Not Resolved]
  - Macular detachment [Not Recovered/Not Resolved]

NARRATIVE: CASE EVENT DATE: 20230916
